FAERS Safety Report 6021575-5 (Version None)
Quarter: 2008Q4

REPORT INFORMATION
  Report Type: 
  Country: None (occurrence: None)
  Receive Date: 20081229
  Receipt Date: 20081222
  Transmission Date: 20090506
  Serious: Yes (Hospitalization, Other)
  Sender: FDA-Public Use
  Company Number: PHHY2008DE30370

PATIENT
  Sex: Male
  Weight: 86 kg

DRUGS (1)
  1. VOLTAREN [Suspect]
     Indication: ARTHRALGIA
     Dosage: UP TO 75MG/DAY AS NEEDED
     Route: 048
     Dates: start: 20081113, end: 20081122

REACTIONS (3)
  - BIPOLAR I DISORDER [None]
  - HOSPITALISATION [None]
  - PSYCHOMOTOR HYPERACTIVITY [None]
